FAERS Safety Report 21489617 (Version 1)
Quarter: 2022Q4

REPORT INFORMATION
  Report Type: Spontaneous
  Country: US (occurrence: US)
  Receive Date: 20221021
  Receipt Date: 20221021
  Transmission Date: 20230113
  Serious: Yes (Death, Life-Threatening, Other)
  Sender: FDA-Public Use
  Company Number: US-AMGEN-USASP2022178581

PATIENT
  Age: 65 Year
  Sex: Male

DRUGS (6)
  1. RITUXIMAB [Suspect]
     Active Substance: RITUXIMAB
     Indication: Goodpasture^s syndrome
     Dosage: UNK
     Route: 065
  2. CYCLOPHOSPHAMIDE [Concomitant]
     Active Substance: CYCLOPHOSPHAMIDE
     Indication: Goodpasture^s syndrome
  3. PYRIMETHAMINE [Concomitant]
     Active Substance: PYRIMETHAMINE
  4. SULFADIAZINE [Concomitant]
     Active Substance: SULFADIAZINE
  5. LEUCOVORIN [Concomitant]
     Active Substance: LEUCOVORIN
  6. METHYLPREDNISOLONE [Concomitant]
     Active Substance: METHYLPREDNISOLONE
     Dosage: 1 GRAM

REACTIONS (8)
  - Death [Fatal]
  - Cardiac arrest [Unknown]
  - Cerebral fungal infection [Unknown]
  - Phaeohyphomycosis [Unknown]
  - Post procedural haemorrhage [Unknown]
  - Subarachnoid haemorrhage [Unknown]
  - Vasogenic cerebral oedema [Unknown]
  - Off label use [Unknown]
